FAERS Safety Report 18104948 (Version 1)
Quarter: 2020Q3

REPORT INFORMATION
  Report Type: Spontaneous
  Country: CA (occurrence: CA)
  Receive Date: 20200804
  Receipt Date: 20200804
  Transmission Date: 20201103
  Serious: Yes (Other)
  Sender: FDA-Public Use
  Company Number: CA-PFIZER INC-2020082444

PATIENT
  Age: 62 Year
  Sex: Female

DRUGS (3)
  1. IBRANCE [Suspect]
     Active Substance: PALBOCICLIB
     Dosage: 75 MG, CYCLIC (ONCE DAILY, 21 DAYS ON, 7 DAYS OFF)
     Route: 048
     Dates: start: 2020
  2. IBRANCE [Suspect]
     Active Substance: PALBOCICLIB
     Indication: BREAST CANCER METASTATIC
     Dosage: 125 MG, CYCLIC (21 DAYS ON, 7 DAYS OFF)
     Dates: start: 20200127, end: 2020
  3. LETROZOLE. [Concomitant]
     Active Substance: LETROZOLE
     Dosage: UNK

REACTIONS (3)
  - Neutropenia [Unknown]
  - Acute pulmonary oedema [Unknown]
  - Peripheral swelling [Unknown]
